FAERS Safety Report 15781660 (Version 3)
Quarter: 2019Q1

REPORT INFORMATION
  Report Type: Spontaneous
  Country: US (occurrence: US)
  Receive Date: 20190102
  Receipt Date: 20190130
  Transmission Date: 20190417
  Serious: No
  Sender: FDA-Public Use
  Company Number: US-PFIZER INC-2018532096

PATIENT
  Age: 82 Year
  Sex: Female

DRUGS (1)
  1. IBRANCE [Suspect]
     Active Substance: PALBOCICLIB
     Indication: BONE CANCER
     Dosage: 75 MG, UNK

REACTIONS (5)
  - Fatigue [Unknown]
  - Gait disturbance [Unknown]
  - Oedema peripheral [Unknown]
  - Somnolence [Unknown]
  - Product use in unapproved indication [Unknown]
